FAERS Safety Report 7601587-8 (Version None)
Quarter: 2011Q3

REPORT INFORMATION
  Report Type: 
  Country: None (occurrence: None)
  Receive Date: 20110711
  Receipt Date: 20110701
  Transmission Date: 20111222
  Serious: Yes (Hospitalization, Other)
  Sender: FDA-Public Use
  Company Number: US-ABBOTT-11P-163-0720245-00

PATIENT
  Sex: Male
  Weight: 63.56 kg

DRUGS (9)
  1. PENTASA [Concomitant]
     Indication: CROHN'S DISEASE
     Dates: end: 20110701
  2. NAUSEA MEDICINE [Concomitant]
     Indication: PRODUCT USED FOR UNKNOWN INDICATION
  3. KLONOPIN [Concomitant]
     Indication: STRESS
  4. GABAPENTIN [Concomitant]
     Indication: PRODUCT USED FOR UNKNOWN INDICATION
  5. HUMIRA [Suspect]
     Indication: CROHN'S DISEASE
     Dates: start: 20100101
  6. PREDNISONE [Concomitant]
     Indication: CROHN'S DISEASE
  7. PAIN MEDICINE [Concomitant]
     Indication: PRODUCT USED FOR UNKNOWN INDICATION
  8. PHENERGAN HCL [Concomitant]
     Indication: NAUSEA
  9. KLONOPIN [Concomitant]
     Indication: ANXIETY

REACTIONS (12)
  - DEVICE MALFUNCTION [None]
  - PYREXIA [None]
  - ABDOMINAL PAIN UPPER [None]
  - DEHYDRATION [None]
  - APPENDICECTOMY [None]
  - ENTERAL NUTRITION [None]
  - SMALL INTESTINAL OBSTRUCTION [None]
  - HYPOPHAGIA [None]
  - DIARRHOEA [None]
  - INTESTINAL OBSTRUCTION [None]
  - VOMITING [None]
  - INCORRECT DOSE ADMINISTERED [None]
